FAERS Safety Report 8062845-9 (Version None)
Quarter: 2012Q1

REPORT INFORMATION
  Report Type: 
  Country: None (occurrence: None)
  Receive Date: 20120111
  Receipt Date: 20111226
  Transmission Date: 20120608
  Serious: Yes (Hospitalization)
  Sender: FDA-Public Use
  Company Number: 2011PROUSA00902

PATIENT
  Age: 67 Year
  Sex: Male
  Weight: 80.7 kg

DRUGS (1)
  1. PROVENGE [Suspect]
     Indication: PROSTATE CANCER METASTATIC
     Dosage: 250 ML, SINGLE, INTRAVENOUS
     Route: 042
     Dates: start: 20111215, end: 20111215

REACTIONS (1)
  - HOSPITALISATION [None]
